FAERS Safety Report 5311206-1 (Version None)
Quarter: 2007Q2

REPORT INFORMATION
  Report Type: 
  Country: None (occurrence: None)
  Receive Date: 20070423
  Receipt Date: 20070410
  Transmission Date: 20071010
  Serious: Yes (Hospitalization)
  Sender: FDA-Public Use
  Company Number: PHFR2007GB01280

PATIENT
  Age: 86 Year
  Sex: Female

DRUGS (7)
  1. TEMAZEPAM [Suspect]
     Dosage: 10 MG, QD, ORAL
     Route: 048
     Dates: start: 20070201, end: 20070328
  2. AMITRIPTYLINE HCL [Concomitant]
  3. ASPIRIN [Concomitant]
  4. LANTUS [Concomitant]
  5. METFORMIN HCL [Concomitant]
  6. RAMIPRIL [Concomitant]
  7. SIMVASTATIN [Concomitant]

REACTIONS (1)
  - FALL [None]
